FAERS Safety Report 6872715-7 (Version None)
Quarter: 2010Q3

REPORT INFORMATION
  Report Type: 
  Country: None (occurrence: None)
  Receive Date: 20100723
  Receipt Date: 20081203
  Transmission Date: 20110219
  Serious: No
  Sender: FDA-Public Use
  Company Number: US-PFIZER INC-2008092284

PATIENT
  Sex: Female
  Weight: 53.515 kg

DRUGS (1)
  1. CHANTIX [Suspect]
     Dosage: UNK
     Dates: start: 20081001

REACTIONS (4)
  - DEPRESSION [None]
  - MIDDLE INSOMNIA [None]
  - NAUSEA [None]
  - POOR QUALITY SLEEP [None]
